FAERS Safety Report 8237273-3 (Version None)
Quarter: 2012Q1

REPORT INFORMATION
  Report Type: 
  Country: None (occurrence: None)
  Receive Date: 20120327
  Receipt Date: 20120327
  Transmission Date: 20120608
  Serious: Yes (Hospitalization, Other)
  Sender: FDA-Public Use
  Company Number: None

PATIENT
  Sex: Male
  Weight: 68.038 kg

DRUGS (1)
  1. MEFLOQUINE HYDROCHLORIDE [Suspect]
     Indication: MALARIA PROPHYLAXIS
     Dosage: 15-25 MG
     Route: 048
     Dates: start: 19930610, end: 19931220

REACTIONS (4)
  - MEMORY IMPAIRMENT [None]
  - HYPERHIDROSIS [None]
  - TREMOR [None]
  - HEADACHE [None]
